FAERS Safety Report 11489769 (Version 3)
Quarter: 2016Q3

REPORT INFORMATION
  Report Type: Spontaneous
  Country: CA (occurrence: CA)
  Receive Date: 20150909
  Receipt Date: 20160719
  Transmission Date: 20161109
  Serious: Yes (Other)
  Sender: FDA-Public Use
  Company Number: CA-JAZZ-2015-CA-002832

PATIENT
  Age: 61 Year
  Sex: Male

DRUGS (21)
  1. XYREM [Suspect]
     Active Substance: SODIUM OXYBATE
     Dosage: 4 G, BID
     Route: 048
     Dates: start: 20111012
  2. XYREM [Suspect]
     Active Substance: SODIUM OXYBATE
     Dosage: 4.25 G, FIRST DOSE
     Route: 048
     Dates: start: 20120904
  3. XYREM [Suspect]
     Active Substance: SODIUM OXYBATE
     Dosage: 4 G, BID
     Route: 048
     Dates: start: 20121115
  4. XYREM [Suspect]
     Active Substance: SODIUM OXYBATE
     Dosage: 4.25 G, BID
     Route: 048
     Dates: start: 20131029
  5. XYREM [Suspect]
     Active Substance: SODIUM OXYBATE
     Dosage: 4.25 G, FIRST DOSE
     Route: 048
     Dates: start: 20140721
  6. XYREM [Suspect]
     Active Substance: SODIUM OXYBATE
     Dosage: 3 G, BID
     Route: 048
     Dates: start: 20150331
  7. XYREM [Suspect]
     Active Substance: SODIUM OXYBATE
     Dosage: 5.25 G, FIRST DOSE
     Route: 048
  8. XYREM [Suspect]
     Active Substance: SODIUM OXYBATE
     Dosage: 4 G, SECOND DOSE
     Route: 048
     Dates: start: 20120904
  9. XYREM [Suspect]
     Active Substance: SODIUM OXYBATE
     Dosage: 4.75 G, BID
     Route: 048
     Dates: start: 20140703
  10. XYREM [Suspect]
     Active Substance: SODIUM OXYBATE
     Dosage: 4.75 G, SECOND DOSE
     Route: 048
     Dates: start: 20140721, end: 20150127
  11. XYREM [Suspect]
     Active Substance: SODIUM OXYBATE
     Dosage: 9 G TOTAL NIGHTLY DOSE
     Dates: start: 20150414
  12. XYREM [Suspect]
     Active Substance: SODIUM OXYBATE
     Dosage: 4.75 G, SECOND DOSE
     Route: 048
  13. XYREM [Suspect]
     Active Substance: SODIUM OXYBATE
     Dosage: 3 G, BID
     Route: 048
     Dates: start: 20110527
  14. XYREM [Suspect]
     Active Substance: SODIUM OXYBATE
     Dosage: 3.75 G, BID
     Route: 048
     Dates: start: 20110621
  15. XYREM [Suspect]
     Active Substance: SODIUM OXYBATE
     Dosage: 4.75 G, SECOND DOSE
     Route: 048
     Dates: start: 20140520
  16. XYREM [Suspect]
     Active Substance: SODIUM OXYBATE
     Dosage: 4.25 G, FIRST DOSE
     Route: 048
     Dates: start: 20140520
  17. XYREM [Suspect]
     Active Substance: SODIUM OXYBATE
     Dosage: 4.25 G, FIRST DOSE
     Route: 048
     Dates: start: 20130107
  18. XYREM [Suspect]
     Active Substance: SODIUM OXYBATE
     Dosage: 4 G, SECOND DOSE
     Route: 048
     Dates: start: 20130107
  19. XYREM [Suspect]
     Active Substance: SODIUM OXYBATE
     Dosage: 6 G, BID
     Route: 048
     Dates: start: 20160318
  20. XYREM [Suspect]
     Active Substance: SODIUM OXYBATE
     Dosage: 11 G, PER NIGHT
     Route: 048
     Dates: start: 20160404
  21. XYREM [Suspect]
     Active Substance: SODIUM OXYBATE
     Indication: SOMNOLENCE
     Dosage: 2.25 G, BID
     Route: 048
     Dates: start: 20110513

REACTIONS (3)
  - Drug dose omission [Unknown]
  - Knee operation [Recovered/Resolved]
  - Overdose [Unknown]

NARRATIVE: CASE EVENT DATE: 20150203
